FAERS Safety Report 9445610 (Version 2)
Quarter: 2014Q1

REPORT INFORMATION
  Report Type: Spontaneous
  Country: US (occurrence: US)
  Receive Date: 20130806
  Receipt Date: 20140123
  Transmission Date: 20141002
  Serious: Yes (Hospitalization)
  Sender: FDA-Public Use
  Company Number: US-B.I. PHARMACEUTICALS,INC./RIDGEFIELD-2013-BI-23195BP

PATIENT
  Sex: Female
  Weight: 58.97 kg

DRUGS (19)
  1. ZINC [Concomitant]
     Dosage: 21.4286 MG
  2. PRADAXA [Suspect]
     Indication: ATRIAL FIBRILLATION
     Dosage: 300 MG
     Dates: start: 20110406, end: 20110803
  3. DIGOXIN [Concomitant]
     Dosage: 0.125 MG
  4. FUROSEMIDE [Concomitant]
     Dosage: 40 MG
     Dates: start: 2001, end: 2012
  5. FLUNISOLIDE [Concomitant]
  6. METOPROLOL [Concomitant]
     Dates: start: 2008
  7. MIACALCIN [Concomitant]
  8. POTASSIUM [Concomitant]
     Dates: start: 2002
  9. PRAVASTATIN [Concomitant]
     Dates: start: 2008
  10. NASONEX [Concomitant]
  11. NITROGLYCERIN [Concomitant]
     Indication: CHEST PAIN
  12. PROAIR [Concomitant]
     Route: 055
  13. ALOE VERA SOFT GEL [Concomitant]
     Dosage: 100 MG
  14. BILBERRY SOFTGEL [Concomitant]
  15. CHROMIUM PICOLINATE [Concomitant]
  16. COQ10 SOFTGEL [Concomitant]
  17. FISH OIL [Concomitant]
     Dosage: 4000 MG
  18. GARLIC SOFTGEL [Concomitant]
  19. SELENIUM [Concomitant]

REACTIONS (2)
  - Upper gastrointestinal haemorrhage [Unknown]
  - Hypochromic anaemia [Unknown]
